FAERS Safety Report 13237058 (Version 1)
Quarter: 2017Q1

REPORT INFORMATION
  Report Type: Spontaneous
  Country: GB (occurrence: GB)
  Receive Date: 20170215
  Receipt Date: 20170215
  Transmission Date: 20170428
  Serious: Yes (Other)
  Sender: FDA-Public Use
  Company Number: GB-SA-2017SA025315

PATIENT
  Age: 37 Year
  Sex: Male

DRUGS (1)
  1. FEXOFENADINE HYDROCHLORIDE. [Suspect]
     Active Substance: FEXOFENADINE HYDROCHLORIDE
     Indication: IDIOPATHIC URTICARIA
     Route: 048
     Dates: start: 20150101, end: 20170104

REACTIONS (1)
  - Abnormal weight gain [Not Recovered/Not Resolved]
